FAERS Safety Report 5040022-3 (Version None)
Quarter: 2006Q2

REPORT INFORMATION
  Report Type: 
  Country: None (occurrence: None)
  Receive Date: 20060630
  Receipt Date: 20060623
  Transmission Date: 20061013
  Serious: Yes (Death, Hospitalization)
  Sender: FDA-Public Use
  Company Number: JP-JNJFOC-20041004830

PATIENT
  Age: 82 Year
  Sex: Male

DRUGS (1)
  1. OFLOCET [Suspect]
     Indication: PROSTATITIS
     Route: 048
     Dates: start: 20040722, end: 20040802

REACTIONS (2)
  - DEATH [None]
  - TENDONITIS [None]
